FAERS Safety Report 6250611-6 (Version None)
Quarter: 2009Q2

REPORT INFORMATION
  Report Type: 
  Country: None (occurrence: None)
  Receive Date: 20090630
  Receipt Date: 20080716
  Transmission Date: 20091009
  Serious: No
  Sender: FDA-Public Use
  Company Number: US-ABBOTT-08P-163-0463539-00

PATIENT
  Sex: Female
  Weight: 68.1 kg

DRUGS (10)
  1. ZEMPLAR [Suspect]
     Indication: BONE DISORDER
     Dosage: 1 MG DAILY
     Route: 048
     Dates: start: 20080609, end: 20080715
  2. ERGOCALCIFEROL [Concomitant]
     Indication: BONE DISORDER
     Route: 048
     Dates: start: 20070101
  3. SORIATANE [Concomitant]
     Indication: DRUG USE FOR UNKNOWN INDICATION
     Dosage: 3 TIMES WEEKLY (MON, WED, AND FRI)
     Route: 048
  4. ESOMEPRAZOLE MAGNESIUM [Concomitant]
     Indication: PROPHYLAXIS
     Route: 048
  5. PREDNISONE TAB [Concomitant]
     Indication: PROPHYLAXIS AGAINST TRANSPLANT REJECTION
     Route: 048
  6. ESCITALOPRAM OXALATE [Concomitant]
     Indication: DEPRESSION
     Route: 048
  7. AMLODIPINE [Concomitant]
     Indication: HYPERTENSION
     Dosage: EVERY NIGHT
     Route: 048
  8. ATENOLOL [Concomitant]
     Indication: HYPERTENSION
     Route: 048
  9. LEVOTHYROXINE SODIUM [Concomitant]
     Indication: DRUG USE FOR UNKNOWN INDICATION
     Route: 048
  10. MAGNESIUM SULFATE [Concomitant]
     Indication: MINERAL SUPPLEMENTATION
     Route: 048

REACTIONS (1)
  - OEDEMA PERIPHERAL [None]
